FAERS Safety Report 9681968 (Version 1)
Quarter: 2013Q4

REPORT INFORMATION
  Report Type: Spontaneous
  Country: CA (occurrence: CA)
  Receive Date: 20131111
  Receipt Date: 20131111
  Transmission Date: 20140711
  Serious: Yes (Other)
  Sender: FDA-Public Use
  Company Number: CA-TEVA-443165USA

PATIENT
  Sex: Female

DRUGS (1)
  1. SEASONIQUE [Suspect]
     Indication: ORAL CONTRACEPTION
     Route: 048
     Dates: start: 2013

REACTIONS (3)
  - Cardiac murmur [Unknown]
  - Metrorrhagia [Unknown]
  - Dizziness [Unknown]
